FAERS Safety Report 4678103-6 (Version None)
Quarter: 2005Q2

REPORT INFORMATION
  Report Type: 
  Country: None (occurrence: None)
  Receive Date: 20050527
  Receipt Date: 20050429
  Transmission Date: 20051028
  Serious: No
  Sender: FDA-Public Use
  Company Number: 11151

PATIENT
  Age: 76 Year
  Sex: Male

DRUGS (2)
  1. AMIODARONE HYDROCHLORIDE [Suspect]
     Indication: ARRHYTHMIA SUPRAVENTRICULAR
     Dosage: 150 MG ONCE IV
     Route: 042
     Dates: start: 20050427, end: 20050427
  2. AMIODARONE HYDROCHLORIDE [Suspect]
     Indication: ARRHYTHMIA SUPRAVENTRICULAR
     Dosage: 16 MG Q1HR IV
     Route: 042
     Dates: start: 20050427, end: 20050427

REACTIONS (3)
  - INFUSION SITE REACTION [None]
  - PAIN [None]
  - SWELLING [None]
